FAERS Safety Report 6174874-0 (Version None)
Quarter: 2009Q2

REPORT INFORMATION
  Report Type: 
  Country: None (occurrence: None)
  Receive Date: 20090430
  Receipt Date: 20081208
  Transmission Date: 20091009
  Serious: No
  Sender: FDA-Public Use
  Company Number: US-ASTRAZENECA-2008UW27288

PATIENT
  Age: 80 Year
  Sex: Female
  Weight: 54.4 kg

DRUGS (5)
  1. NEXIUM [Suspect]
     Route: 048
  2. SYNTHROID [Concomitant]
  3. ASPIRIN [Concomitant]
  4. ATENOLOL [Concomitant]
  5. VITAMIN B-12 [Concomitant]

REACTIONS (2)
  - GASTRIC PH INCREASED [None]
  - PERNICIOUS ANAEMIA [None]
